FAERS Safety Report 20422882 (Version 1)
Quarter: 2022Q1

REPORT INFORMATION
  Report Type: Spontaneous
  Country: HN (occurrence: HN)
  Receive Date: 20220203
  Receipt Date: 20220203
  Transmission Date: 20220423
  Serious: Yes (Other)
  Sender: FDA-Public Use
  Company Number: HN-PFIZER INC-202200163193

PATIENT
  Age: 74 Year
  Sex: Male

DRUGS (1)
  1. LIPITOR [Suspect]
     Active Substance: ATORVASTATIN CALCIUM
     Dosage: HALF A TABLET IN THE MORNING AND HALF A TABLET IN THE EVENING
     Route: 048
     Dates: start: 2016

REACTIONS (2)
  - Spinal fracture [Unknown]
  - Gait disturbance [Unknown]
